FAERS Safety Report 4583101-7 (Version None)
Quarter: 2005Q1

REPORT INFORMATION
  Report Type: 
  Country: None (occurrence: None)
  Receive Date: 20050125
  Receipt Date: 20041129
  Transmission Date: 20050727
  Serious: No
  Sender: FDA-Public Use
  Company Number: USA041079826

PATIENT
  Age: 74 Year
  Sex: Female

DRUGS (2)
  1. FORTEO [Suspect]
     Dates: start: 20040909
  2. PREDNISONE [Concomitant]

REACTIONS (7)
  - ARTHRALGIA [None]
  - ARTHROPATHY [None]
  - CHEST PAIN [None]
  - DIZZINESS [None]
  - FRACTURE [None]
  - PAIN [None]
  - SPINAL COMPRESSION FRACTURE [None]
